FAERS Safety Report 9058631 (Version 3)
Quarter: 2013Q1

REPORT INFORMATION
  Report Type: Spontaneous
  Country: IT (occurrence: IT)
  Receive Date: 20130211
  Receipt Date: 20130327
  Transmission Date: 20140127
  Serious: Yes (Other)
  Sender: FDA-Public Use
  Company Number: IT-NOVOPROD-370110

PATIENT
  Age: 44 Year
  Sex: Male

DRUGS (2)
  1. NOVORAPID FLEXPEN [Suspect]
     Indication: DIABETES MELLITUS
     Dosage: 12 U, QD
     Route: 058
     Dates: start: 20000101
  2. LANTUS [Suspect]
     Indication: DIABETES MELLITUS
     Dosage: 20 U, QD
     Route: 058

REACTIONS (3)
  - Hypoglycaemia [Unknown]
  - Confusional state [Unknown]
  - Blood glucose abnormal [Unknown]
